FAERS Safety Report 13911354 (Version 3)
Quarter: 2020Q3

REPORT INFORMATION
  Report Type: Spontaneous
  Country: US (occurrence: US)
  Receive Date: 20170828
  Receipt Date: 20200721
  Transmission Date: 20201102
  Serious: Yes (Life-Threatening)
  Sender: FDA-Public Use
  Company Number: PHHY2017US124877

PATIENT
  Age: 59 Year
  Sex: Female

DRUGS (3)
  1. LINEZOLID. [Suspect]
     Active Substance: LINEZOLID
     Indication: CELLULITIS STAPHYLOCOCCAL
     Dosage: UNK
     Route: 065
  2. LINEZOLID. [Interacting]
     Active Substance: LINEZOLID
     Indication: STAPHYLOCOCCAL INFECTION
  3. WARFARIN SODIUM. [Interacting]
     Active Substance: WARFARIN SODIUM
     Indication: EMBOLISM VENOUS
     Dosage: UNK
     Route: 065

REACTIONS (12)
  - Septic shock [Recovered/Resolved]
  - Lactic acidosis [Recovered/Resolved]
  - Hepatic function abnormal [Recovering/Resolving]
  - Malaise [Recovered/Resolved]
  - Decreased appetite [Recovered/Resolved]
  - International normalised ratio increased [Recovered/Resolved]
  - Transaminases abnormal [Recovered/Resolved]
  - Hypoglycaemia [Recovered/Resolved]
  - Thrombocytopenia [Recovered/Resolved]
  - Somnolence [Recovered/Resolved]
  - Anticoagulation drug level above therapeutic [Recovering/Resolving]
  - Drug interaction [Recovering/Resolving]
